FAERS Safety Report 18593800 (Version 3)
Quarter: 2021Q1

REPORT INFORMATION
  Report Type: Report from Study
  Country: None (occurrence: US)
  Receive Date: 20201208
  Receipt Date: 20210212
  Transmission Date: 20210419
  Serious: Yes (Hospitalization, Other)
  Sender: FDA-Public Use
  Company Number: US-ABBVIE-20K-163-3680993-00

PATIENT
  Age: 75 Year
  Sex: Female
  Weight: 53.57 kg

DRUGS (4)
  1. HUMIRA [Suspect]
     Active Substance: ADALIMUMAB
     Indication: PSORIASIS
  2. HUMIRA [Suspect]
     Active Substance: ADALIMUMAB
     Indication: CROHN^S DISEASE
     Route: 058
     Dates: start: 201803
  3. AZOPT [Concomitant]
     Active Substance: BRINZOLAMIDE
     Indication: GLAUCOMA
  4. DUREZOL [Concomitant]
     Active Substance: DIFLUPREDNATE
     Indication: GLAUCOMA

REACTIONS (5)
  - Accident [Unknown]
  - Lower limb fracture [Unknown]
  - Wrist fracture [Recovering/Resolving]
  - Fall [Recovering/Resolving]
  - Face injury [Unknown]

NARRATIVE: CASE EVENT DATE: 20201126
